FAERS Safety Report 8188455 (Version 2)
Quarter: 2012Q4

REPORT INFORMATION
  Report Type: Report from Study
  Country: US (occurrence: US)
  Receive Date: 20111019
  Receipt Date: 20121018
  Transmission Date: 20130627
  Serious: Yes (Hospitalization, Other)
  Sender: FDA-Public Use
  Company Number: US-UCBSA-003036

PATIENT
  Age: 27 None
  Sex: Male
  Weight: 3.49 kg

DRUGS (2)
  1. KEPPRA [Suspect]
     Indication: SIMPLE PARTIAL SEIZURES
     Route: 064
     Dates: start: 20090118, end: 200907
  2. ZONEGRAN [Concomitant]
     Indication: CONVULSION
     Route: 064
     Dates: end: 20090916

REACTIONS (4)
  - Lung disorder [Recovered/Resolved]
  - Jaundice [Recovered/Resolved]
  - Premature baby [Recovered/Resolved]
  - Foetal exposure during pregnancy [Recovered/Resolved]
